FAERS Safety Report 24438485 (Version 4)
Quarter: 2025Q1

REPORT INFORMATION
  Report Type: Spontaneous
  Country: US (occurrence: US)
  Receive Date: 20241015
  Receipt Date: 20250107
  Transmission Date: 20250409
  Serious: No
  Sender: PFIZER
  Company Number: US-PFIZER INC-202400273100

PATIENT
  Age: 79 Year
  Sex: Female
  Weight: 56.25 kg

DRUGS (1)
  1. PREMARIN [Suspect]
     Active Substance: ESTROGENS, CONJUGATED
     Indication: Vaginal haemorrhage

REACTIONS (6)
  - Haemorrhage [Unknown]
  - Incorrect dose administered by device [Unknown]
  - Drug effective for unapproved indication [Unknown]
  - Off label use [Unknown]
  - Overdose [Unknown]
  - Device use issue [Unknown]
